FAERS Safety Report 4383679-2 (Version None)
Quarter: 2004Q2

REPORT INFORMATION
  Report Type: 
  Country: None (occurrence: None)
  Receive Date: 20040623
  Receipt Date: 20040614
  Transmission Date: 20050107
  Serious: Yes (Hospitalization, Disabling)
  Sender: FDA-Public Use
  Company Number: FR-GLAXOSMITHKLINE-B0336017A

PATIENT
  Age: 48 Year
  Sex: Female

DRUGS (2)
  1. COMBIVIR [Suspect]
     Indication: HIV INFECTION
     Route: 048
  2. VIREAD [Suspect]
     Indication: HIV INFECTION
     Route: 048

REACTIONS (2)
  - ANGINA UNSTABLE [None]
  - ARTERIAL STENOSIS [None]
